FAERS Safety Report 4519301-1 (Version None)
Quarter: 2004Q4

REPORT INFORMATION
  Report Type: 
  Country: None (occurrence: None)
  Receive Date: 20041206
  Receipt Date: 20041129
  Transmission Date: 20050328
  Serious: Yes (Other)
  Sender: FDA-Public Use
  Company Number: US-GLAXOSMITHKLINE-A0535434A

PATIENT
  Sex: Female

DRUGS (1)
  1. PAXIL CR [Suspect]
     Indication: ANXIETY
     Dosage: 25MG UNKNOWN
     Route: 048

REACTIONS (10)
  - AMENORRHOEA [None]
  - DRUG WITHDRAWAL SYNDROME [None]
  - HALLUCINATION [None]
  - HOT FLUSH [None]
  - LOSS OF LIBIDO [None]
  - NAUSEA [None]
  - NIGHT SWEATS [None]
  - NIGHTMARE [None]
  - SLEEP DISORDER [None]
  - VERTIGO [None]
